FAERS Safety Report 5312056-2 (Version None)
Quarter: 2007Q2

REPORT INFORMATION
  Report Type: 
  Country: None (occurrence: None)
  Receive Date: 20070430
  Receipt Date: 20060906
  Transmission Date: 20071010
  Serious: No
  Sender: FDA-Public Use
  Company Number: 2006UW16923

PATIENT
  Age: 45 Year
  Sex: Female

DRUGS (7)
  1. NEXIUM [Suspect]
     Route: 048
  2. FISH OIL [Concomitant]
  3. VITAMIN CAP [Concomitant]
  4. GARLIC [Concomitant]
  5. METFORM [Concomitant]
  6. ZOCOR [Concomitant]
  7. TRICOR [Concomitant]

REACTIONS (5)
  - CONTUSION [None]
  - FATIGUE [None]
  - OEDEMA PERIPHERAL [None]
  - PAIN IN EXTREMITY [None]
  - SENSATION OF HEAVINESS [None]
